FAERS Safety Report 23257534 (Version 3)
Quarter: 2024Q2

REPORT INFORMATION
  Report Type: Spontaneous
  Country: US (occurrence: US)
  Receive Date: 20231204
  Receipt Date: 20240515
  Transmission Date: 20240716
  Serious: No
  Sender: FDA-Public Use
  Company Number: US-PFIZER INC-PV202300190566

PATIENT
  Age: 65 Year
  Sex: Female
  Weight: 90.703 kg

DRUGS (4)
  1. XELJANZ [Suspect]
     Active Substance: TOFACITINIB CITRATE
     Dosage: UNK
  2. ASPIRIN [Concomitant]
     Active Substance: ASPIRIN
     Dosage: UNK
  3. GINKGO AL [Concomitant]
     Dosage: UNK
  4. CHLORAL HYDRATE [Concomitant]
     Active Substance: CHLORAL HYDRATE
     Indication: Seasonal allergy
     Dosage: UNK

REACTIONS (2)
  - Illness [Unknown]
  - Influenza [Unknown]
